FAERS Safety Report 9839758 (Version 1)
Quarter: 2014Q1

REPORT INFORMATION
  Report Type: Spontaneous
  Country: US (occurrence: US)
  Receive Date: 20140124
  Receipt Date: 20140124
  Transmission Date: 20141002
  Serious: No
  Sender: FDA-Public Use
  Company Number: US-BIOGENIDEC-2014BI005713

PATIENT
  Age: 44 Year
  Sex: Male
  Weight: 133 kg

DRUGS (6)
  1. TECFIDERA [Suspect]
     Indication: MULTIPLE SCLEROSIS
     Route: 048
  2. EFFEXOR [Concomitant]
  3. ZYRTEC [Concomitant]
  4. OMEPRAZOLE [Concomitant]
  5. TEMAZEPAM [Concomitant]
  6. VITAMIN B12 [Concomitant]

REACTIONS (2)
  - Dry skin [Unknown]
  - Pruritus [Unknown]
